FAERS Safety Report 25733330 (Version 1)
Quarter: 2025Q3

REPORT INFORMATION
  Report Type: Spontaneous
  Country: US (occurrence: US)
  Receive Date: 20250828
  Receipt Date: 20250828
  Transmission Date: 20251021
  Serious: Yes (Other)
  Sender: PHARMACOSMOS A/S
  Company Number: US-NEBO-704555

PATIENT
  Age: 78 Year
  Sex: Female

DRUGS (4)
  1. BRILINTA [Concomitant]
     Active Substance: TICAGRELOR
  2. MONOFERRIC [Suspect]
     Active Substance: FERRIC DERISOMALTOSE
     Indication: Product used for unknown indication
  3. MONOFERRIC [Suspect]
     Active Substance: FERRIC DERISOMALTOSE
     Indication: Product used for unknown indication
  4. ASPIRIN [Concomitant]
     Active Substance: ASPIRIN

REACTIONS (4)
  - Renal tubular necrosis [Unknown]
  - Anaphylactic reaction [Unknown]
  - Colitis ulcerative [Unknown]
  - C-reactive protein increased [Unknown]

NARRATIVE: CASE EVENT DATE: 20250819
